FAERS Safety Report 8119358-5 (Version None)
Quarter: 2011Q4

REPORT INFORMATION
  Report Type: 
  Country: None (occurrence: None)
  Receive Date: 20111227
  Receipt Date: 20111003
  Transmission Date: 20120403
  Serious: No
  Sender: FDA-Public Use
  Company Number: PHEH2011US05791

PATIENT
  Age: 41 Year

DRUGS (1)
  1. GILENYA [Suspect]
     Dosage: 0.5 MG, QD
     Dates: start: 20110824, end: 20110909

REACTIONS (3)
  - ASTHENIA [None]
  - HEAD DISCOMFORT [None]
  - PARAESTHESIA [None]
